FAERS Safety Report 10574378 (Version 4)
Quarter: 2015Q1

REPORT INFORMATION
  Report Type: Spontaneous
  Country: US (occurrence: US)
  Receive Date: 20141110
  Receipt Date: 20150316
  Transmission Date: 20150720
  Serious: Yes (Death, Hospitalization, Disabling, Other)
  Sender: FDA-Public Use
  Company Number: US-009507513-1411USA003792

PATIENT
  Sex: Female
  Weight: 70.3 kg

DRUGS (2)
  1. NUVARING [Suspect]
     Active Substance: ETHINYL ESTRADIOL\ETONOGESTREL
     Indication: CONTRACEPTION
     Dosage: UNK
     Route: 067
     Dates: start: 20071214, end: 20090513
  2. NUVARING [Suspect]
     Active Substance: ETHINYL ESTRADIOL\ETONOGESTREL
     Dosage: UNK
     Route: 067
     Dates: start: 2011

REACTIONS (20)
  - Cerebrovascular accident [Recovered/Resolved]
  - Somnolence [Unknown]
  - Weight increased [Unknown]
  - Chronic obstructive pulmonary disease [Unknown]
  - Vitamin B12 deficiency [Unknown]
  - Dermatitis contact [Unknown]
  - Sinusitis [Unknown]
  - Carpal tunnel syndrome [Unknown]
  - Pulmonary embolism [Fatal]
  - Pain in extremity [Unknown]
  - Coronary artery disease [Unknown]
  - Pharyngitis [Unknown]
  - Restless legs syndrome [Unknown]
  - Migraine [Unknown]
  - Rash [Unknown]
  - Dermatitis contact [Unknown]
  - Mass excision [Unknown]
  - Depression [Unknown]
  - Overweight [Unknown]
  - Relapsing-remitting multiple sclerosis [Unknown]

NARRATIVE: CASE EVENT DATE: 2007
